FAERS Safety Report 24765505 (Version 21)
Quarter: 2025Q4

REPORT INFORMATION
  Report Type: Report from Study
  Country: US (occurrence: None)
  Receive Date: 20241223
  Receipt Date: 20251222
  Transmission Date: 20260117
  Serious: Yes (Hospitalization, Other)
  Sender: UCB
  Company Number: US-UCBSA-2024054688

PATIENT
  Weight: 14.1 kg

DRUGS (29)
  1. FENFLURAMINE [Suspect]
     Active Substance: FENFLURAMINE
     Indication: Severe myoclonic epilepsy of infancy
     Dosage: 1.4 MILLILITER, 2X/DAY (BID)
     Route: 061
  2. FENFLURAMINE [Suspect]
     Active Substance: FENFLURAMINE
     Dosage: 1.4 MILLILITER, 2X/DAY (BID)
     Route: 061
  3. FENFLURAMINE [Suspect]
     Active Substance: FENFLURAMINE
     Dosage: UNK
     Route: 061
  4. FENFLURAMINE [Suspect]
     Active Substance: FENFLURAMINE
     Dosage: 0.22 MILLIGRAM/KILOGRAM/DAY
     Route: 061
  5. FENFLURAMINE [Suspect]
     Active Substance: FENFLURAMINE
     Dosage: 1.4 MILLILITER, 2X/DAY (BID)
     Route: 061
  6. FENFLURAMINE [Suspect]
     Active Substance: FENFLURAMINE
     Dosage: 1.4 MILLILITER, 2X/DAY (BID)
     Route: 061
  7. FENFLURAMINE [Suspect]
     Active Substance: FENFLURAMINE
     Dosage: 2 MILLILITER, 2X/DAY (BID)
     Route: 061
  8. FENFLURAMINE [Suspect]
     Active Substance: FENFLURAMINE
     Dosage: 2 MILLILITER, 2X/DAY (BID)
     Route: 061
  9. FENFLURAMINE [Suspect]
     Active Substance: FENFLURAMINE
     Dosage: 2 MILLILITER, 2X/DAY (BID)
     Route: 061
  10. FENFLURAMINE [Suspect]
     Active Substance: FENFLURAMINE
     Dosage: 2.5 MILLILITER, 2X/DAY (BID)
     Route: 061
  11. FENFLURAMINE [Suspect]
     Active Substance: FENFLURAMINE
     Dosage: 2.5 MILLILITER, 2X/DAY (BID)
     Route: 061
  12. FENFLURAMINE [Suspect]
     Active Substance: FENFLURAMINE
     Dosage: 5.5 MILLIGRAM, 2X/DAY (BID)
     Route: 061
  13. FENFLURAMINE [Suspect]
     Active Substance: FENFLURAMINE
     Dosage: 2.5 MILLILITER, 2X/DAY (BID)
     Route: 061
  14. FENFLURAMINE [Suspect]
     Active Substance: FENFLURAMINE
     Dosage: 2.5 MILLILITER, 2X/DAY (BID)
     Route: 061
  15. FENFLURAMINE [Suspect]
     Active Substance: FENFLURAMINE
     Dosage: 11 MG/DAY
     Route: 061
  16. FENFLURAMINE [Suspect]
     Active Substance: FENFLURAMINE
     Dosage: 2.5 MILLILITER, 2X/DAY (BID)
     Route: 061
  17. FENFLURAMINE [Suspect]
     Active Substance: FENFLURAMINE
     Dosage: 2.5 MILLILITER, 2X/DAY (BID)
     Route: 061
  18. FENFLURAMINE [Suspect]
     Active Substance: FENFLURAMINE
     Dosage: 2.5 MILLILITER, 2X/DAY (BID)
     Route: 061
  19. FENFLURAMINE [Suspect]
     Active Substance: FENFLURAMINE
     Dosage: 2.5 MILLILITER, 2X/DAY (BID)
     Route: 061
  20. FENFLURAMINE [Suspect]
     Active Substance: FENFLURAMINE
     Dosage: 2.5 MILLILITER, 2X/DAY (BID)
  21. AUGMENTIN [Suspect]
     Active Substance: AMOXICILLIN\CLAVULANATE POTASSIUM
     Indication: Streptococcal infection
     Dosage: UNK
  22. AUGMENTIN [Suspect]
     Active Substance: AMOXICILLIN\CLAVULANATE POTASSIUM
     Indication: Bronchitis
  23. AUGMENTIN [Suspect]
     Active Substance: AMOXICILLIN\CLAVULANATE POTASSIUM
     Indication: Sinusitis
  24. AUGMENTIN [Suspect]
     Active Substance: AMOXICILLIN\CLAVULANATE POTASSIUM
     Indication: Conjunctivitis
  25. ROCEPHIN [Concomitant]
     Active Substance: CEFTRIAXONE SODIUM
     Indication: Ear infection
     Dosage: UNK
  26. AMOXICILLIN [Concomitant]
     Active Substance: AMOXICILLIN
     Indication: Streptococcal infection
     Dosage: UNK
  27. AMOXICILLIN [Concomitant]
     Active Substance: AMOXICILLIN
     Indication: Bronchitis
  28. AMOXICILLIN [Concomitant]
     Active Substance: AMOXICILLIN
     Indication: Sinusitis
  29. AMOXICILLIN [Concomitant]
     Active Substance: AMOXICILLIN
     Indication: Conjunctivitis

REACTIONS (42)
  - Seizure [Recovered/Resolved]
  - Hospitalisation [Not Recovered/Not Resolved]
  - Pneumonia [Recovered/Resolved]
  - Febrile convulsion [Not Recovered/Not Resolved]
  - Seizure cluster [Not Recovered/Not Resolved]
  - Respiratory failure [Recovered/Resolved]
  - Cerebral atrophy [Unknown]
  - Ear tube insertion [Not Recovered/Not Resolved]
  - Adenoidectomy [Not Recovered/Not Resolved]
  - Myoclonic epilepsy [Not Recovered/Not Resolved]
  - Aspiration [Not Recovered/Not Resolved]
  - Clostridium difficile infection [Recovered/Resolved]
  - Fall [Not Recovered/Not Resolved]
  - Platelet count decreased [Recovered/Resolved]
  - Enterovirus infection [Recovered/Resolved]
  - Herpes simplex [Recovered/Resolved]
  - Rhinovirus infection [Recovered/Resolved]
  - Face injury [Not Recovered/Not Resolved]
  - Vagal nerve stimulator implantation [Not Recovered/Not Resolved]
  - Weight decreased [Not Recovered/Not Resolved]
  - Viral infection [Not Recovered/Not Resolved]
  - Nasopharyngitis [Recovered/Resolved]
  - Ear infection [Not Recovered/Not Resolved]
  - Pyrexia [Not Recovered/Not Resolved]
  - Streptococcal infection [Unknown]
  - Bronchitis [Not Recovered/Not Resolved]
  - Sinusitis [Not Recovered/Not Resolved]
  - Conjunctivitis [Not Recovered/Not Resolved]
  - Diarrhoea [Not Recovered/Not Resolved]
  - Dehydration [Not Recovered/Not Resolved]
  - Dermatitis diaper [Not Recovered/Not Resolved]
  - Coronavirus infection [Not Recovered/Not Resolved]
  - Fatigue [Not Recovered/Not Resolved]
  - Adenovirus infection [Not Recovered/Not Resolved]
  - Salivary hypersecretion [Not Recovered/Not Resolved]
  - Muscle twitching [Not Recovered/Not Resolved]
  - Muscle spasms [Not Recovered/Not Resolved]
  - Nystagmus [Not Recovered/Not Resolved]
  - Headache [Not Recovered/Not Resolved]
  - Gastroenteritis [Unknown]
  - Upper respiratory tract infection [Unknown]
  - Pharyngitis streptococcal [Not Recovered/Not Resolved]
